FAERS Safety Report 5926545-0 (Version None)
Quarter: 2008Q4

REPORT INFORMATION
  Report Type: 
  Country: None (occurrence: None)
  Receive Date: 20081022
  Receipt Date: 20081013
  Transmission Date: 20090506
  Serious: Yes (Other)
  Sender: FDA-Public Use
  Company Number: CH-ELI_LILLY_AND_COMPANY-CH200810003717

PATIENT
  Age: 69 Year
  Sex: Female

DRUGS (5)
  1. CYMBALTA [Suspect]
     Indication: DEPRESSION
     Dosage: 60 MG, DAILY (1/D)
     Route: 048
     Dates: start: 20080825, end: 20081013
  2. SEROQUEL [Concomitant]
     Indication: AFFECTIVE DISORDER
     Dosage: 150 MG, UNKNOWN
     Route: 065
  3. SEROQUEL [Concomitant]
     Dosage: 50 MG, DAILY (1/D)
     Route: 048
     Dates: start: 20061206
  4. DIAMICRON [Concomitant]
     Dosage: UNK, 2/D
     Route: 065
     Dates: start: 20031001
  5. GLUCOPHAGE [Concomitant]
     Dosage: UNK, 2/D
     Route: 048
     Dates: start: 20030801

REACTIONS (4)
  - ALANINE AMINOTRANSFERASE INCREASED [None]
  - ASPARTATE AMINOTRANSFERASE INCREASED [None]
  - FOOD AVERSION [None]
  - GAMMA-GLUTAMYLTRANSFERASE INCREASED [None]
